FAERS Safety Report 21658182 (Version 2)
Quarter: 2022Q4

REPORT INFORMATION
  Report Type: Spontaneous
  Country: JP (occurrence: JP)
  Receive Date: 20221129
  Receipt Date: 20221224
  Transmission Date: 20230113
  Serious: Yes (Hospitalization, Other)
  Sender: FDA-Public Use
  Company Number: JP-Accord-288178

PATIENT
  Age: 59 Year
  Sex: Male

DRUGS (6)
  1. CLOZAPINE [Suspect]
     Active Substance: CLOZAPINE
     Indication: Schizophrenia
     Dosage: ALSO RECEIVED 50 MG, 75 MG AND THEN DECREASED TO 25 MG.
  2. VALPROIC ACID [Concomitant]
     Active Substance: VALPROIC ACID
     Indication: Schizophrenia
  3. PALIPERIDONE PALMITATE [Concomitant]
     Active Substance: PALIPERIDONE PALMITATE
     Indication: Schizophrenia
  4. ASENAPINE MALEATE [Concomitant]
     Active Substance: ASENAPINE MALEATE
     Indication: Schizophrenia
  5. CARBAMAZEPINE [Concomitant]
     Active Substance: CARBAMAZEPINE
     Indication: Schizophrenia
  6. LEMBOREXANT [Concomitant]
     Active Substance: LEMBOREXANT
     Indication: Schizophrenia

REACTIONS (8)
  - Pyrexia [Recovered/Resolved]
  - Renal failure [Recovered/Resolved]
  - Atrial fibrillation [Recovered/Resolved]
  - Eosinophilia [Recovered/Resolved]
  - Leukocytosis [Recovered/Resolved]
  - Neutrophilia [Recovered/Resolved]
  - Tubulointerstitial nephritis [Recovered/Resolved]
  - Venous thrombosis [Unknown]
